FAERS Safety Report 4437618-6 (Version None)
Quarter: 2004Q3

REPORT INFORMATION
  Report Type: 
  Country: None (occurrence: None)
  Receive Date: 20040827
  Receipt Date: 20040823
  Transmission Date: 20050211
  Serious: Yes (Other)
  Sender: FDA-Public Use
  Company Number: 2004-06-0162

PATIENT
  Age: 60 Year
  Sex: Male
  Weight: 59 kg

DRUGS (6)
  1. REBETOL [Suspect]
     Indication: HEPATITIS C
     Dosage: 600 MG ORAL
     Route: 048
     Dates: start: 20040409
  2. INTRON A [Suspect]
     Indication: HEPATITIS C
     Dosage: 10-6* INTRAMUSCULAR
     Route: 030
     Dates: start: 20040409
  3. NORVASC [Concomitant]
  4. BLOPRESS (CANDESARTAN CILEXETIL) [Concomitant]
  5. URSO [Concomitant]
  6. HERBAL MEDICATION NOS [Concomitant]

REACTIONS (2)
  - FUNDOSCOPY ABNORMAL [None]
  - OPHTHALMOLOGICAL EXAMINATION ABNORMAL [None]
